FAERS Safety Report 16577086 (Version 1)
Quarter: 2019Q3

REPORT INFORMATION
  Report Type: Spontaneous
  Country: US (occurrence: US)
  Receive Date: 20190716
  Receipt Date: 20190716
  Transmission Date: 20191004
  Serious: Yes (Life-Threatening, Other)
  Sender: FDA-Public Use
  Company Number: US-AUROBINDO-AUR-APL-2019-038833

PATIENT

DRUGS (3)
  1. BUPIVACAINE HYDROCHLORIDE INJECTION USP 0.75% (7.5 MG/ML) [Suspect]
     Active Substance: BUPIVACAINE HYDROCHLORIDE
     Indication: NERVE BLOCK
     Dosage: INJECTING 6 CC OF A 1:1 MIXTURE OF 0.75% BUPIVACAINE AND 2.0% LIDOCAINE
     Route: 065
  2. PROPOFOL. [Concomitant]
     Active Substance: PROPOFOL
     Indication: PRODUCT USED FOR UNKNOWN INDICATION
     Dosage: UNK
     Route: 065
  3. LIDOCAINE INJECTION [Suspect]
     Active Substance: LIDOCAINE
     Indication: NERVE BLOCK
     Dosage: INJECTING 6 CC OF A 1:1 MIXTURE OF 0.75% BUPIVACAINE AND 2.0% LIDOCAINE
     Route: 065

REACTIONS (5)
  - Infiltration anaesthesia [Recovered/Resolved]
  - Injection site extravasation [Recovered/Resolved]
  - Wrong technique in product usage process [Recovered/Resolved]
  - Mydriasis [Recovered/Resolved]
  - Amaurosis [Recovered/Resolved]
